FAERS Safety Report 4914941-X (Version None)
Quarter: 2006Q1

REPORT INFORMATION
  Report Type: 
  Country: None (occurrence: None)
  Receive Date: 20060217
  Receipt Date: 20060209
  Transmission Date: 20060701
  Serious: Yes (Life-Threatening, Hospitalization, Disabling)
  Sender: FDA-Public Use
  Company Number: US-JNJFOC-20050805739

PATIENT
  Sex: Male

DRUGS (9)
  1. INFLIXIMAB [Suspect]
     Route: 042
  2. INFLIXIMAB [Suspect]
     Indication: RHEUMATOID ARTHRITIS
     Route: 042
  3. METHOTREXATE [Suspect]
     Indication: RHEUMATOID ARTHRITIS
  4. PREDNISONE [Concomitant]
  5. IBUPROFEN [Concomitant]
  6. RANITIDINE [Concomitant]
  7. CAPTOPRIL [Concomitant]
  8. CALCIUM CARBONATE [Concomitant]
  9. FOLIC ACID [Concomitant]

REACTIONS (5)
  - CHRONIC RESPIRATORY FAILURE [None]
  - ORAL CANDIDIASIS [None]
  - PNEUMOCYSTIS JIROVECI PNEUMONIA [None]
  - PNEUMONIA [None]
  - RESPIRATORY FAILURE [None]
